FAERS Safety Report 6821278-0 (Version None)
Quarter: 2010Q3

REPORT INFORMATION
  Report Type: 
  Country: None (occurrence: None)
  Receive Date: 20100707
  Receipt Date: 20080728
  Transmission Date: 20110219
  Serious: No
  Sender: FDA-Public Use
  Company Number: US-PFIZER INC-2008062357

PATIENT
  Sex: Female
  Weight: 90.909 kg

DRUGS (6)
  1. ZOLOFT [Suspect]
     Indication: DEPRESSION
     Dates: start: 20050101, end: 20080724
  2. ULTRAM [Interacting]
     Indication: FIBROMYALGIA
     Dates: start: 20080601
  3. LYRICA [Concomitant]
     Indication: FIBROMYALGIA
  4. HYDROCHLOROTHIAZIDE [Concomitant]
     Indication: HYPERTENSION
  5. ZYRTEC [Concomitant]
     Indication: HYPERSENSITIVITY
  6. ACCOLATE [Concomitant]
     Indication: ASTHMA

REACTIONS (2)
  - DRUG INEFFECTIVE [None]
  - DRUG INTERACTION [None]
